FAERS Safety Report 23029495 (Version 1)
Quarter: 2023Q4

REPORT INFORMATION
  Report Type: Spontaneous
  Country: US (occurrence: US)
  Receive Date: 20231004
  Receipt Date: 20231004
  Transmission Date: 20240110
  Serious: Yes (Hospitalization)
  Sender: FDA-Public Use
  Company Number: US-PFIZER INC-PV202300161860

PATIENT
  Age: 70 Year
  Sex: Female

DRUGS (1)
  1. NIFEDIPINE [Suspect]
     Active Substance: NIFEDIPINE
     Dosage: UNK

REACTIONS (6)
  - Hypertensive crisis [Unknown]
  - Pneumonia [Unknown]
  - Drug ineffective [Unknown]
  - Peripheral swelling [Unknown]
  - Dizziness [Unknown]
  - Headache [Unknown]
